FAERS Safety Report 23742759 (Version 1)
Quarter: 2024Q2

REPORT INFORMATION
  Report Type: Report from Study
  Country: US (occurrence: US)
  Receive Date: 20240415
  Receipt Date: 20240415
  Transmission Date: 20240716
  Serious: Yes (Other)
  Sender: FDA-Public Use
  Company Number: US-BAUSCH-BL-2023-008524

PATIENT
  Age: 68 Year
  Sex: Male

DRUGS (1)
  1. TRULANCE [Suspect]
     Active Substance: PLECANATIDE
     Indication: Product used for unknown indication
     Dosage: 90 DAYS
     Route: 048

REACTIONS (6)
  - Fall [Unknown]
  - Dyschezia [Unknown]
  - Abdominal pain upper [Unknown]
  - Therapeutic product effect incomplete [Unknown]
  - Insurance issue [Unknown]
  - Therapy interrupted [Unknown]
